FAERS Safety Report 7993436-3 (Version None)
Quarter: 2011Q4

REPORT INFORMATION
  Report Type: 
  Country: None (occurrence: None)
  Receive Date: 20111219
  Receipt Date: 20110325
  Transmission Date: 20120403
  Serious: No
  Sender: FDA-Public Use
  Company Number: US-ASTRAZENECA-2011SE07102

PATIENT
  Age: 72 Year
  Sex: Female
  Weight: 74.4 kg

DRUGS (6)
  1. CRESTOR [Suspect]
     Indication: HYPO HDL CHOLESTEROLAEMIA
     Route: 048
     Dates: start: 20101201
  2. AMBIEN [Concomitant]
     Indication: SLEEP DISORDER
  3. ACTOPLUS MET [Concomitant]
     Indication: DIABETES MELLITUS
  4. ZOLOFT [Concomitant]
     Indication: DEPRESSION
  5. LIPITOR [Concomitant]
  6. WELLBUTRIN [Concomitant]
     Indication: DEPRESSION

REACTIONS (8)
  - GLYCOSYLATED HAEMOGLOBIN INCREASED [None]
  - MYALGIA [None]
  - ARTHRALGIA [None]
  - LETHARGY [None]
  - ABDOMINAL PAIN [None]
  - COUGH [None]
  - NAUSEA [None]
  - ASTHENIA [None]
